FAERS Safety Report 6938158-2 (Version None)
Quarter: 2010Q3

REPORT INFORMATION
  Report Type: 
  Country: None (occurrence: None)
  Receive Date: 20100817
  Receipt Date: 20100805
  Transmission Date: 20110219
  Serious: Yes (Hospitalization)
  Sender: FDA-Public Use
  Company Number: 7013230

PATIENT
  Age: 72 Year
  Sex: Female
  Weight: 55 kg

DRUGS (4)
  1. LEVOTHYROXINE SODIUM [Suspect]
     Indication: HYPOTHYROIDISM
     Dosage: 37.5 MCG (37.5 MCG, 1 IN 1 D) ORAL
     Route: 048
  2. ATARAX [Suspect]
     Indication: PRODUCT USED FOR UNKNOWN INDICATION
     Dosage: 200 MG (200 MG, 1 IN 1 D) ORAL
     Route: 048
     Dates: start: 20100630, end: 20100630
  3. PRAZEPAM [Concomitant]
  4. STILNOX (ZOLPIDEM) (ZOLPIDEM) [Concomitant]

REACTIONS (8)
  - ANXIETY [None]
  - CONFUSIONAL STATE [None]
  - CONVULSION [None]
  - DYSARTHRIA [None]
  - INSOMNIA [None]
  - METABOLIC DISORDER [None]
  - PYREXIA [None]
  - THERAPEUTIC AGENT TOXICITY [None]
